FAERS Safety Report 5788374-0 (Version None)
Quarter: 2008Q2

REPORT INFORMATION
  Report Type: 
  Country: None (occurrence: None)
  Receive Date: 20080625
  Receipt Date: 20080613
  Transmission Date: 20081010
  Serious: Yes (Life-Threatening, Other)
  Sender: FDA-Public Use
  Company Number: GB-PFIZER INC-2008050497

PATIENT
  Age: 64 Year
  Sex: Female

DRUGS (10)
  1. PHENYTOIN [Suspect]
     Dates: start: 20080314, end: 20080314
  2. ASPIRIN [Concomitant]
  3. ATENOLOL [Concomitant]
  4. ATORVASTATIN [Concomitant]
  5. CITALOPRAM HYDROBROMIDE [Concomitant]
  6. LANSOPRAZOLE [Concomitant]
  7. METFORMIN HYDROCHLORIDE [Concomitant]
  8. OLANZAPINE [Concomitant]
  9. PERINDOPRIL ERBUMINE [Concomitant]
  10. PROCYCLIDINE HYDROCHLORIDE 2MG TAB [Concomitant]

REACTIONS (2)
  - HEART RATE INCREASED [None]
  - RESPIRATORY RATE INCREASED [None]
